FAERS Safety Report 25416174 (Version 1)
Quarter: 2025Q2

REPORT INFORMATION
  Report Type: Spontaneous
  Country: IN (occurrence: IN)
  Receive Date: 20250610
  Receipt Date: 20250610
  Transmission Date: 20250716
  Serious: Yes (Hospitalization, Other)
  Sender: RANBAXY
  Company Number: IN-SUN PHARMACEUTICAL INDUSTRIES LTD-2025R1-510529

PATIENT
  Age: 19 Year
  Sex: Female

DRUGS (2)
  1. LIDOCAINE [Suspect]
     Active Substance: LIDOCAINE
     Indication: Hypertension
     Route: 042
  2. MAGNESIUM [Suspect]
     Active Substance: MAGNESIUM
     Indication: Hypertension
     Route: 042

REACTIONS (4)
  - Exposure during pregnancy [Not Recovered/Not Resolved]
  - Blood pressure increased [Not Recovered/Not Resolved]
  - Hypercapnia [Recovered/Resolved]
  - Subcutaneous emphysema [Recovered/Resolved]
